FAERS Safety Report 4370256-2 (Version None)
Quarter: 2004Q2

REPORT INFORMATION
  Report Type: 
  Country: None (occurrence: None)
  Receive Date: 20040603
  Receipt Date: 20040330
  Transmission Date: 20050107
  Serious: No
  Sender: FDA-Public Use
  Company Number: US-BRISTOL-MYERS SQUIBB COMPANY-12546149

PATIENT
  Age: 42 Year
  Sex: Female
  Weight: 82 kg

DRUGS (3)
  1. ABILIFY [Suspect]
     Indication: PSYCHOTIC DISORDER
     Dosage: INCREASED TO 7.5 MG/DAY (1/2 OF A 15 MG TABLET) ABOUT 1 1/2 WEEKS PRIOR TO THE REPORT.
     Route: 048
  2. ABILIFY [Suspect]
     Indication: SCHIZOPHRENIA
     Dosage: INCREASED TO 7.5 MG/DAY (1/2 OF A 15 MG TABLET) ABOUT 1 1/2 WEEKS PRIOR TO THE REPORT.
     Route: 048
  3. LEXAPRO [Concomitant]

REACTIONS (2)
  - FLATULENCE [None]
  - STOMACH DISCOMFORT [None]
